FAERS Safety Report 8698264 (Version 2)
Quarter: 2013Q4

REPORT INFORMATION
  Report Type: Spontaneous
  Country: US (occurrence: US)
  Receive Date: 20120802
  Receipt Date: 20131031
  Transmission Date: 20140711
  Serious: Yes (Hospitalization, Other)
  Sender: FDA-Public Use
  Company Number: US-009507513-1207USA010811

PATIENT
  Age: 79 Year
  Sex: Male

DRUGS (18)
  1. PROSCAR [Suspect]
     Dosage: 5 MG, UNK
     Route: 048
  2. ZOCOR [Interacting]
     Dosage: 20 MG, QD
  3. ZOCOR [Interacting]
     Dosage: 40 MG, QD
  4. DOXAZOSIN MESYLATE [Interacting]
     Dosage: 5 MG, UNK
  5. AMLODIPINE [Interacting]
     Dosage: 8 MG, UNK
  6. GEMFIBROZIL [Interacting]
     Dosage: 60 MG, BID
  7. HYDRALAZINE [Concomitant]
     Dosage: 100 MG, UNK
  8. LACTULOSE [Concomitant]
     Dosage: 20 G, PRN
  9. ERGOCALCIFEROL [Concomitant]
     Dosage: 50000 DF, UNK
  10. INSULIN GLARGINE [Concomitant]
     Dosage: 70 DF, UNK
  11. ASPIRIN [Concomitant]
     Dosage: 81 MG, UNK
  12. LISINOPRIL [Concomitant]
     Dosage: 20 MG, UNK
  13. METOPROLOL [Concomitant]
     Dosage: 200 MG, UNK
  14. TRAVOPROST [Concomitant]
     Dosage: 40 MG, UNK
  15. FUROSEMIDE [Concomitant]
     Dosage: 40 MG, UNK
  16. LEVOTHYROXINE SODIUM [Concomitant]
     Dosage: 88 MG, UNK
  17. FERROUS SULFATE [Concomitant]
     Dosage: 325 MG, UNK
  18. SODIUM POLYSTYRENE SULFONATE [Concomitant]
     Dosage: 30 MG, UNK

REACTIONS (21)
  - Iron deficiency anaemia [Unknown]
  - Drug interaction [Unknown]
  - Pain [Unknown]
  - Alanine aminotransferase increased [Unknown]
  - Irritability [Unknown]
  - Rhabdomyolysis [Unknown]
  - Erosive duodenitis [Unknown]
  - Abdominal distension [Unknown]
  - Tricuspid valve incompetence [Unknown]
  - Muscular weakness [Unknown]
  - Blood creatinine increased [Unknown]
  - Mitral valve incompetence [Unknown]
  - Gait disturbance [Unknown]
  - Renal failure chronic [Unknown]
  - Ileus [Unknown]
  - Aspartate aminotransferase increased [Unknown]
  - Myopathy toxic [Unknown]
  - Abdominal pain [Unknown]
  - Haemoglobin decreased [Unknown]
  - Myotonia [Unknown]
  - Paraesthesia [Unknown]
